FAERS Safety Report 17135218 (Version 1)
Quarter: 2019Q4

REPORT INFORMATION
  Report Type: Spontaneous
  Country: US (occurrence: US)
  Receive Date: 20191210
  Receipt Date: 20191210
  Transmission Date: 20200122
  Serious: Yes (Hospitalization)
  Sender: FDA-Public Use
  Company Number: US-PFIZER INC-2019526982

PATIENT
  Age: 69 Year
  Sex: Male

DRUGS (4)
  1. DASATINIB. [Concomitant]
     Active Substance: DASATINIB
     Indication: B-CELL TYPE ACUTE LEUKAEMIA
     Dosage: 100 MG, DAILY
     Route: 048
     Dates: start: 20180927, end: 20181029
  2. DEXAMETHASONE. [Concomitant]
     Active Substance: DEXAMETHASONE
     Indication: B-CELL TYPE ACUTE LEUKAEMIA
     Dosage: 40 MG, DAILY (FOR 2 DAYS, 4 CYCLES)
     Dates: start: 20180927
  3. VINCRISTINE [Concomitant]
     Active Substance: VINCRISTINE
     Indication: B-CELL TYPE ACUTE LEUKAEMIA
     Dosage: UNK, WEEKLY (2 WEEKS)
     Route: 042
     Dates: start: 20180927, end: 20181010
  4. METHOTREXATE SODIUM. [Suspect]
     Active Substance: METHOTREXATE SODIUM
     Indication: B-CELL TYPE ACUTE LEUKAEMIA
     Dosage: UNK, WEEKLY (3 WEEKS)
     Route: 037
     Dates: start: 2018, end: 20181018

REACTIONS (2)
  - Product dose omission [Unknown]
  - Subdural hygroma [Recovering/Resolving]

NARRATIVE: CASE EVENT DATE: 20181024
